FAERS Safety Report 5488299-4 (Version None)
Quarter: 2007Q4

REPORT INFORMATION
  Report Type: 
  Country: None (occurrence: None)
  Receive Date: 20071005
  Receipt Date: 20070607
  Transmission Date: 20080405
  Serious: Yes (Other)
  Sender: FDA-Public Use
  Company Number: PHEH2007US08493

PATIENT
  Age: 65 Year
  Sex: Female

DRUGS (3)
  1. TEKTURNA [Suspect]
     Indication: HYPERTENSION
     Dosage: 150 MG, QD, ORAL
     Route: 048
     Dates: start: 20070501
  2. SYMTHROID (LEVOTHYROXINE SODIUM) [Concomitant]
  3. PRILOSEC [Concomitant]

REACTIONS (1)
  - BLOOD PRESSURE INCREASED [None]
